FAERS Safety Report 7210273-8 (Version None)
Quarter: 2011Q1

REPORT INFORMATION
  Report Type: 
  Country: None (occurrence: None)
  Receive Date: 20110105
  Receipt Date: 20101227
  Transmission Date: 20110831
  Serious: Yes (Life-Threatening, Other)
  Sender: FDA-Public Use
  Company Number: IE-PFIZER INC-2010157787

PATIENT
  Age: 46 Year
  Sex: Male
  Weight: 75 kg

DRUGS (1)
  1. LYRICA [Suspect]
     Indication: GENERALISED ANXIETY DISORDER
     Dosage: 75 MG, 2X/DAY
     Route: 048
     Dates: start: 20100825, end: 20100830

REACTIONS (3)
  - PSYCHOTIC DISORDER [None]
  - PARANOIA [None]
  - AGITATION [None]
